FAERS Safety Report 8357655-9 (Version None)
Quarter: 2012Q2

REPORT INFORMATION
  Report Type: 
  Country: None (occurrence: None)
  Receive Date: 20120511
  Receipt Date: 20120427
  Transmission Date: 20120825
  Serious: Yes (Hospitalization)
  Sender: FDA-Public Use
  Company Number: FR-1189657

PATIENT
  Age: 75 Year
  Sex: Female

DRUGS (9)
  1. TRAVATAN [Suspect]
     Dosage: OPTHALMIC
     Route: 047
  2. CELEBREX [Concomitant]
  3. TRAVATAN [Suspect]
     Dosage: OPHTHALMIC
     Route: 047
  4. TOPIRAMATE [Concomitant]
  5. IRBESARTAN [Concomitant]
  6. NARATRIPTAN [Concomitant]
  7. LAMISIL [Concomitant]
  8. NOCTAMIDE [Concomitant]
  9. NEO-MERCAZOLE TAB [Concomitant]

REACTIONS (2)
  - RAYNAUD'S PHENOMENON [None]
  - SJOGREN'S SYNDROME [None]
